FAERS Safety Report 20559242 (Version 1)
Quarter: 2022Q1

REPORT INFORMATION
  Report Type: Spontaneous
  Country: US (occurrence: US)
  Receive Date: 20220307
  Receipt Date: 20220307
  Transmission Date: 20220423
  Serious: No
  Sender: FDA-Public Use
  Company Number: US-TEVA-2022-US-2007538

PATIENT
  Age: 40 Year
  Sex: Female

DRUGS (1)
  1. AJOVY [Suspect]
     Active Substance: FREMANEZUMAB-VFRM
     Dosage: STRENGTH: 225 MG / 1.5 ML
     Route: 058

REACTIONS (4)
  - Device deployment issue [Unknown]
  - Injection site haemorrhage [Unknown]
  - Device audio issue [Unknown]
  - Migraine [Unknown]

NARRATIVE: CASE EVENT DATE: 20220203
